FAERS Safety Report 19702647 (Version 16)
Quarter: 2024Q3

REPORT INFORMATION
  Report Type: Report from Study
  Country: GB (occurrence: GB)
  Receive Date: 20210815
  Receipt Date: 20240713
  Transmission Date: 20241017
  Serious: Yes (Hospitalization, Other)
  Sender: BAXTER
  Company Number: GB-BAXTER-2021BAX024508

PATIENT
  Age: 52 Year
  Sex: Female
  Weight: 101 kg

DRUGS (31)
  1. CYCLOPHOSPHAMIDE [Suspect]
     Active Substance: CYCLOPHOSPHAMIDE
     Indication: Diffuse large B-cell lymphoma stage IV
     Dosage: 750 MG/M2, C1D1, DOSAGE FORM: POWDER FOR SOLUTION FOR INJECTION, AS A PART OF R-CHOP REGIMEN
     Route: 042
     Dates: start: 20210721, end: 20210721
  2. CYCLOPHOSPHAMIDE [Suspect]
     Active Substance: CYCLOPHOSPHAMIDE
     Dosage: 750 MG/M2, RP1D1, DOSAGE FORM: POWDER FOR SOLUTION FOR INJECTION, AS A PART OF R-CHOP REGIMEN
     Route: 042
     Dates: start: 20210811, end: 20210811
  3. DOXORUBICIN [Suspect]
     Active Substance: DOXORUBICIN
     Indication: Diffuse large B-cell lymphoma stage IV
     Dosage: 50 MG/M2, C1D1, DOSAGE FORM: SOLUTION FOR INFUSION, AS A PART OF R-CHOP REGIMEN
     Route: 042
     Dates: start: 20210721, end: 20210721
  4. DOXORUBICIN [Suspect]
     Active Substance: DOXORUBICIN
     Dosage: 50 MG/M2, RP1D1, DOSAGE FORM: SOLUTION FOR INFUSION, AS A PART OF R-CHOP REGIMEN
     Route: 042
     Dates: start: 20210811, end: 20210811
  5. EPCORITAMAB [Suspect]
     Active Substance: EPCORITAMAB
     Indication: Diffuse large B-cell lymphoma stage IV
     Dosage: 0.16 MG, C1D1, PRIMING DOSE, LATEST DOSE, PRIOR TO THE EVENT (EPISODE 1) ONSET
     Route: 058
     Dates: start: 20210722, end: 20210722
  6. EPCORITAMAB [Suspect]
     Active Substance: EPCORITAMAB
     Dosage: 0.16 MG, RE-PRIMING DOSE, P1D1, LATEST DOSE, PRIOR TO THE EVENT (EPISODE 2) ONSET, TWO DOSES
     Route: 058
     Dates: start: 20210811, end: 20210811
  7. EPCORITAMAB [Suspect]
     Active Substance: EPCORITAMAB
     Dosage: 0.16 MG, RE-PRIMED FOR A SECOND TIME
     Route: 065
     Dates: start: 20210902
  8. RITUXIMAB [Suspect]
     Active Substance: RITUXIMAB
     Indication: Diffuse large B-cell lymphoma stage IV
     Dosage: 375 MG/M2, C1D1, AS A PART OF R-CHOP REGIMEN
     Route: 042
     Dates: start: 20210721, end: 20210722
  9. RITUXIMAB [Suspect]
     Active Substance: RITUXIMAB
     Dosage: 375 MG/M2, RP1D1, AS A PART OF R-CHOP REGIMEN
     Route: 042
     Dates: start: 20210811, end: 20210811
  10. VINCRISTINE [Suspect]
     Active Substance: VINCRISTINE
     Indication: Diffuse large B-cell lymphoma stage IV
     Dosage: 1.4 MG/M2, C1D1, SINGLE, AS A PART OF R-CHOP REGIMEN
     Route: 042
     Dates: start: 20210721, end: 20210721
  11. VINCRISTINE [Suspect]
     Active Substance: VINCRISTINE
     Dosage: 1.4 MG/M2, RP1D1, AS A PART OF R-CHOP REGIMEN
     Route: 042
     Dates: start: 20210811, end: 20210811
  12. PREDNISOLONE [Suspect]
     Active Substance: PREDNISOLONE
     Indication: Diffuse large B-cell lymphoma stage IV
     Dosage: 100 MG, QD, AS A PART OF R-CHOP REGIMEN
     Route: 048
     Dates: start: 20210721, end: 20210725
  13. PREDNISOLONE [Suspect]
     Active Substance: PREDNISOLONE
     Dosage: 100 MG, QD, AS A PART OF R-CHOP REGIMEN
     Route: 048
     Dates: start: 20210811, end: 20210815
  14. CHLORPHENIRAMINE MALEATE [Concomitant]
     Active Substance: CHLORPHENIRAMINE MALEATE
     Indication: Premedication
     Dosage: 10 MG
     Route: 042
     Dates: start: 20210721, end: 20210721
  15. CHLORPHENIRAMINE MALEATE [Concomitant]
     Active Substance: CHLORPHENIRAMINE MALEATE
     Dosage: 10 MG
     Route: 042
     Dates: start: 20210722, end: 20210722
  16. CHLORPHENIRAMINE MALEATE [Concomitant]
     Active Substance: CHLORPHENIRAMINE MALEATE
     Dosage: 10 MG
     Route: 042
     Dates: start: 20210811, end: 20210811
  17. ACETAMINOPHEN [Concomitant]
     Active Substance: ACETAMINOPHEN
     Indication: Premedication
     Dosage: 1 G
     Route: 048
     Dates: start: 20210721, end: 20210721
  18. ACETAMINOPHEN [Concomitant]
     Active Substance: ACETAMINOPHEN
     Dosage: 1 G
     Route: 048
     Dates: start: 20210722, end: 20210722
  19. ACETAMINOPHEN [Concomitant]
     Active Substance: ACETAMINOPHEN
     Dosage: 1 G
     Route: 048
     Dates: start: 20210811, end: 20210811
  20. ONDANSETRON [Concomitant]
     Active Substance: ONDANSETRON
     Dosage: UNK
     Route: 065
     Dates: start: 20210721, end: 20210813
  21. RASBURICASE [Concomitant]
     Active Substance: RASBURICASE
     Dosage: UNK
     Route: 065
     Dates: start: 20210721, end: 20210722
  22. FILGRASTIM [Concomitant]
     Active Substance: FILGRASTIM
     Dosage: UNK
     Route: 065
     Dates: start: 20210812, end: 20210818
  23. ACYCLOVIR [Concomitant]
     Active Substance: ACYCLOVIR
     Dosage: UNK, ONGOING
     Route: 065
     Dates: start: 20210721
  24. COTRIMOXAZOLE [Concomitant]
     Active Substance: SULFAMETHOXAZOLE\TRIMETHOPRIM
     Dosage: UNK, ONGOING
     Route: 065
     Dates: start: 20210721
  25. CODEINE [Concomitant]
     Active Substance: CODEINE
     Dosage: UNK, ONGOING
     Route: 065
     Dates: start: 20210721
  26. FLUCONAZOLE [Concomitant]
     Active Substance: FLUCONAZOLE
     Dosage: UNK, ONGOING
     Route: 065
     Dates: start: 20210721
  27. LANSOPRAZOLE [Concomitant]
     Active Substance: LANSOPRAZOLE
     Dosage: UNK, ONGOING, START DATE: JUN-2021
     Route: 065
  28. METOCLOPRAMIDE [Concomitant]
     Active Substance: METOCLOPRAMIDE
     Dosage: UNK, ONGOING
     Route: 065
     Dates: start: 20210721
  29. CYCLIZINE [Concomitant]
     Active Substance: CYCLIZINE
     Dosage: UNK, ONGOING, STOP DATE: APR-2022
     Route: 065
     Dates: start: 20210824
  30. SENNA [Concomitant]
     Active Substance: SENNA LEAF\SENNOSIDES\SENNOSIDES A AND B
     Dosage: UNK, ONGOING
     Route: 065
     Dates: start: 20210818
  31. DALTEPARIN [Concomitant]
     Active Substance: DALTEPARIN
     Dosage: UNK
     Route: 065
     Dates: start: 20210721, end: 20210827

REACTIONS (2)
  - Febrile neutropenia [Recovered/Resolved]
  - Febrile neutropenia [Recovered/Resolved]

NARRATIVE: CASE EVENT DATE: 20210727
